FAERS Safety Report 8776964 (Version 1)
Quarter: 2012Q4

REPORT INFORMATION
  Report Type: 
  Country: US (occurrence: US)
  Receive Date: 20120911
  Receipt Date: 20120911
  Transmission Date: 20130627
  Serious: Yes (Death)
  Sender: FDA-Public Use
  Company Number: US-GLAXOSMITHKLINE-A0992776A

PATIENT
  Age: 62 Year
  Sex: Male

DRUGS (5)
  1. PROMACTA [Suspect]
     Indication: HEPATITIS C
     Dosage: 25MG Per day
     Route: 048
     Dates: start: 20120815, end: 20120830
  2. RIBAVIRIN [Concomitant]
  3. PEGASYS [Concomitant]
  4. INCIVEK [Concomitant]
  5. NEULASTA [Concomitant]

REACTIONS (2)
  - Sepsis [Fatal]
  - Peritonitis bacterial [Fatal]
